FAERS Safety Report 10163164 (Version 2)
Quarter: 2014Q3

REPORT INFORMATION
  Report Type: Spontaneous
  Country: US (occurrence: US)
  Receive Date: 20140509
  Receipt Date: 20140818
  Transmission Date: 20150326
  Serious: Yes (Other)
  Sender: FDA-Public Use
  Company Number: US-GLAXOSMITHKLINE-A1072551A

PATIENT
  Sex: Female

DRUGS (1)
  1. VENTOLIN [Suspect]
     Active Substance: ALBUTEROL SULFATE
     Indication: RESPIRATORY DISORDER
     Dosage: 90MCG UNKNOWN
     Route: 055
     Dates: start: 20121219

REACTIONS (4)
  - Hip fracture [Unknown]
  - Fall [Unknown]
  - Rehabilitation therapy [Unknown]
  - Adverse event [Unknown]
